FAERS Safety Report 4494978-8 (Version None)
Quarter: 2004Q4

REPORT INFORMATION
  Report Type: 
  Country: None (occurrence: None)
  Receive Date: 20041105
  Receipt Date: 20041105
  Transmission Date: 20050328
  Serious: Yes (Hospitalization)
  Sender: FDA-Public Use
  Company Number: None

PATIENT
  Sex: Male
  Weight: 77 kg

DRUGS (7)
  1. FENTANYL [Suspect]
     Indication: SEDATION
     Dosage: 100MG?    ONCE    INTRAVENOU
     Route: 042
     Dates: start: 20040922, end: 20040922
  2. LOVASTATIN [Concomitant]
  3. LISINOPRIL [Concomitant]
  4. AMLODIPINE [Concomitant]
  5. NITROPATCH [Concomitant]
  6. METOPROLOL [Concomitant]
  7. ASPIRIN [Concomitant]

REACTIONS (3)
  - BLOOD PRESSURE SYSTOLIC DECREASED [None]
  - NAUSEA [None]
  - VOMITING [None]
